FAERS Safety Report 24764994 (Version 1)
Quarter: 2024Q4

REPORT INFORMATION
  Report Type: Spontaneous
  Country: PR (occurrence: PR)
  Receive Date: 20241223
  Receipt Date: 20241223
  Transmission Date: 20250115
  Serious: Yes (Life-Threatening, Hospitalization)
  Sender: MACLEODS
  Company Number: PR-MLMSERVICE-20241211-PI285628-00217-2

PATIENT

DRUGS (2)
  1. METFORMIN [Suspect]
     Active Substance: METFORMIN HYDROCHLORIDE
     Indication: Type 2 diabetes mellitus
     Route: 048
  2. LOSARTAN [Concomitant]
     Active Substance: LOSARTAN
     Indication: Product used for unknown indication
     Route: 048

REACTIONS (5)
  - Hyperkalaemia [Recovered/Resolved]
  - Electrocardiogram T wave peaked [Unknown]
  - Hyponatraemia [Recovered/Resolved]
  - Hyperlactacidaemia [Recovered/Resolved]
  - Lactic acidosis [Recovered/Resolved]
